FAERS Safety Report 7429023-5 (Version None)
Quarter: 2011Q2

REPORT INFORMATION
  Report Type: 
  Country: None (occurrence: None)
  Receive Date: 20110421
  Receipt Date: 20110406
  Transmission Date: 20111010
  Serious: Yes (Hospitalization, Other)
  Sender: FDA-Public Use
  Company Number: JP-CELGENEUS-087-21880-10100394

PATIENT
  Sex: Female
  Weight: 39.9 kg

DRUGS (25)
  1. REVLIMID [Suspect]
     Indication: MULTIPLE MYELOMA
     Dosage: 5 MILLIGRAM
     Route: 048
     Dates: start: 20100827, end: 20100916
  2. NATRIX [Concomitant]
     Indication: HYPERTENSION
     Dosage: 1 MILLIGRAM
     Route: 048
     Dates: start: 20100701, end: 20100923
  3. REVLIMID [Suspect]
     Dosage: 10 MILLIGRAM
     Route: 048
     Dates: start: 20101126, end: 20101216
  4. LENADEX [Suspect]
     Dosage: 20 MILLIGRAM
     Route: 048
     Dates: start: 20100904, end: 20100907
  5. LENADEX [Suspect]
     Dosage: 12 MILLIGRAM
     Route: 048
     Dates: start: 20101005, end: 20101006
  6. OMEPRAL [Concomitant]
     Dosage: 20 MILLIGRAM
     Route: 048
     Dates: start: 20100912, end: 20100915
  7. DUROTEP MT [Concomitant]
     Dosage: 2.1 MILLIGRAM
     Route: 062
     Dates: start: 20100715
  8. LENADEX [Suspect]
     Dosage: 12 MILLIGRAM
     Route: 048
     Dates: start: 20101012, end: 20101013
  9. LENADEX [Suspect]
     Dosage: 12 MILLIGRAM
     Route: 048
     Dates: start: 20101126, end: 20101210
  10. LENADEX [Suspect]
     Dosage: 12 MILLIGRAM
     Route: 048
     Dates: start: 20101109, end: 20101110
  11. SELBEX [Concomitant]
     Indication: PROPHYLAXIS
     Dosage: 100 MILLIGRAM
     Route: 048
     Dates: start: 20100106
  12. REVLIMID [Suspect]
     Dosage: 10 MILLIGRAM
     Route: 048
     Dates: start: 20101026, end: 20101116
  13. LENADEX [Suspect]
     Indication: MULTIPLE MYELOMA
     Dosage: 20 MILLIGRAM
     Route: 048
     Dates: start: 20100827, end: 20100830
  14. LENADEX [Suspect]
     Dosage: 12 MILLIGRAM
     Route: 048
     Dates: start: 20100928, end: 20100929
  15. LENADEX [Suspect]
     Dosage: 12 MILLIGRAM
     Route: 048
     Dates: start: 20101102, end: 20101103
  16. OMEPRAL [Concomitant]
     Indication: PROPHYLAXIS
     Dosage: 20 MILLIGRAM
     Route: 048
     Dates: start: 20100827, end: 20100830
  17. GASMOTIN [Concomitant]
     Indication: PROPHYLAXIS
     Dosage: 15 MILLIGRAM
     Route: 048
     Dates: start: 20100716, end: 20100912
  18. PALGIN [Concomitant]
     Dosage: .5 MILLIGRAM
     Route: 048
     Dates: start: 20100106
  19. REVLIMID [Suspect]
     Dosage: 5 MILLIGRAM
     Route: 048
     Dates: start: 20100928, end: 20101019
  20. LENADEX [Suspect]
     Dosage: 20 MILLIGRAM
     Route: 048
     Dates: start: 20100912, end: 20100915
  21. LENADEX [Suspect]
     Dosage: 12 MILLIGRAM
     Route: 048
     Dates: start: 20101026, end: 20101027
  22. OMEPRAL [Concomitant]
     Dosage: 20 MILLIGRAM
     Route: 048
     Dates: start: 20100904, end: 20100907
  23. OSTELUC [Concomitant]
     Dosage: 400 MILLIGRAM
     Route: 048
     Dates: start: 20100106
  24. BLOPRESS [Concomitant]
     Indication: HYPERTENSION
     Dosage: 8 MILLIGRAM
     Route: 048
     Dates: start: 20100702
  25. LAXOBERON [Concomitant]
     Dosage: 10 DROPS
     Route: 048
     Dates: start: 20100625, end: 20100927

REACTIONS (10)
  - HYPOMAGNESAEMIA [None]
  - TETANY [None]
  - BLOOD ALKALINE PHOSPHATASE INCREASED [None]
  - ANAEMIA [None]
  - LEUKOPENIA [None]
  - BLOOD CREATININE INCREASED [None]
  - CYSTITIS [None]
  - BONE PAIN [None]
  - HYPOCALCAEMIA [None]
  - THROMBOCYTOPENIA [None]
